FAERS Safety Report 9660038 (Version 4)
Quarter: 2014Q2

REPORT INFORMATION
  Report Type: Spontaneous
  Country: US (occurrence: US)
  Receive Date: 20131031
  Receipt Date: 20140612
  Transmission Date: 20141212
  Serious: Yes (Other)
  Sender: FDA-Public Use
  Company Number: US-BAYER-2013-132375

PATIENT
  Age: 34 Year
  Sex: Female
  Weight: 84.81 kg

DRUGS (3)
  1. MIRENA [Suspect]
     Indication: CONTRACEPTION
     Dosage: 20 MCG/24HR, CONT
     Route: 015
     Dates: start: 20130814, end: 20131018
  2. ASMANEX [Concomitant]
     Dosage: UNK
     Dates: start: 20130218
  3. ZOLOFT [Concomitant]
     Dosage: UNK
     Dates: start: 20100330

REACTIONS (2)
  - Device dislocation [Recovered/Resolved]
  - Off label use [None]
